FAERS Safety Report 16081852 (Version 2)
Quarter: 2019Q2

REPORT INFORMATION
  Report Type: Spontaneous
  Country: US (occurrence: US)
  Receive Date: 20190316
  Receipt Date: 20190508
  Transmission Date: 20190711
  Serious: Yes (Hospitalization, Other)
  Sender: FDA-Public Use
  Company Number: US-JNJFOC-20190235144

PATIENT
  Age: 34 Year
  Sex: Female
  Weight: 86.18 kg

DRUGS (3)
  1. REMICADE [Suspect]
     Active Substance: INFLIXIMAB
     Indication: COLITIS ULCERATIVE
     Route: 042
     Dates: start: 20170213, end: 20170316
  2. VIT D [Concomitant]
     Active Substance: VITAMIN D NOS
     Route: 065
     Dates: start: 2016
  3. VITAMIN C [Concomitant]
     Active Substance: ASCORBIC ACID
     Route: 065
     Dates: start: 2016

REACTIONS (5)
  - Arthralgia [Unknown]
  - Anaemia [Unknown]
  - Diarrhoea [Unknown]
  - Rash [Unknown]
  - Rectal haemorrhage [Unknown]

NARRATIVE: CASE EVENT DATE: 20170316
